FAERS Safety Report 6307580-X (Version None)
Quarter: 2009Q3

REPORT INFORMATION
  Report Type: 
  Country: None (occurrence: None)
  Receive Date: 20090813
  Receipt Date: 20090804
  Transmission Date: 20100115
  Serious: Yes (Hospitalization, Other)
  Sender: FDA-Public Use
  Company Number: US-ELI_LILLY_AND_COMPANY-US200908000920

PATIENT
  Sex: Female

DRUGS (3)
  1. FORTEO [Suspect]
     Dates: start: 20050101, end: 20070101
  2. BONIVA [Concomitant]
     Dates: start: 20080101
  3. PREDNISONE [Concomitant]

REACTIONS (10)
  - BLOOD DISORDER [None]
  - BLOOD PRESSURE INCREASED [None]
  - FRACTURE [None]
  - OXYGEN SATURATION DECREASED [None]
  - PNEUMONIA [None]
  - PNEUMONIA STAPHYLOCOCCAL [None]
  - REACTION TO PRESERVATIVES [None]
  - RENAL FAILURE [None]
  - SWELLING [None]
  - WEIGHT INCREASED [None]
